FAERS Safety Report 4502900-0 (Version None)
Quarter: 2004Q4

REPORT INFORMATION
  Report Type: 
  Country: None (occurrence: None)
  Receive Date: 20041116
  Receipt Date: 20041116
  Transmission Date: 20050328
  Serious: Yes (Hospitalization)
  Sender: FDA-Public Use
  Company Number: None

PATIENT
  Age: 62 Year
  Sex: Female
  Weight: 62.14 kg

DRUGS (10)
  1. CISPLATIN [Suspect]
     Indication: OESOPHAGEAL CARCINOMA
     Dosage: 27MG DAYS1-5 I.V.
     Route: 042
     Dates: start: 20041101, end: 20041106
  2. PACLITAXEL [Suspect]
     Dosage: 370MG DAY 1 24HR INFUSION
     Dates: start: 20041101, end: 20041102
  3. FLUOROURACIL [Suspect]
     Dosage: 1280MG 24 HR INFUSION DAY 1-5
  4. NEXIUM [Concomitant]
  5. LESCOL [Concomitant]
  6. LISINOPRIL [Concomitant]
  7. ADVAIR DISKUS 100/50 [Concomitant]
  8. COMBIVENT [Concomitant]
  9. ASPIRIN [Concomitant]
  10. VITAMIN E [Concomitant]

REACTIONS (5)
  - DYSPNOEA EXERTIONAL [None]
  - MUCOSAL INFLAMMATION [None]
  - NEUTROPENIA [None]
  - PNEUMONIA ASPIRATION [None]
  - PYREXIA [None]
